FAERS Safety Report 5689819-7 (Version None)
Quarter: 2008Q1

REPORT INFORMATION
  Report Type: 
  Country: None (occurrence: None)
  Receive Date: 20080328
  Receipt Date: 20080319
  Transmission Date: 20080703
  Serious: Yes (Other)
  Sender: FDA-Public Use
  Company Number: 2008AP000700

PATIENT
  Age: 50 Year
  Sex: Female

DRUGS (12)
  1. PAROXETINE HCL [Suspect]
     Dosage: 20 MG; PO ; QD;   10 MG ;PO;  QD
     Route: 048
     Dates: start: 19970128
  2. PAROXETINE HCL [Suspect]
     Dosage: 20 MG; PO ; QD;   10 MG ;PO;  QD
     Route: 048
     Dates: start: 20020302
  3. PAROXETINE HCL [Suspect]
     Dosage: 20 MG; PO ; QD;   10 MG ;PO;  QD
     Route: 048
     Dates: start: 20030702
  4. PAROXETINE HCL [Suspect]
     Dosage: 20 MG; PO ; QD;   10 MG ;PO;  QD
     Route: 048
     Dates: start: 20030708
  5. AMOXAPINE [Concomitant]
  6. CITALOPRAM HYDROBROMIDE [Concomitant]
  7. DIAZEPAM [Concomitant]
  8. VENLAFAXINE HCL [Concomitant]
  9. LOFEPRAMINE (LOFEPRAMINE) [Concomitant]
  10. DOTHIEPIN HYDROCHLORIDE [Concomitant]
  11. MIRTAZAPINE [Concomitant]
  12. ENDOCRINE THERAPY (ENDOCRINE THERAPY) [Concomitant]

REACTIONS (29)
  - ABDOMINAL DISTENSION [None]
  - ABDOMINAL PAIN UPPER [None]
  - ANOREXIA [None]
  - ANXIETY [None]
  - ASTHENIA [None]
  - DIARRHOEA [None]
  - DRUG INEFFECTIVE [None]
  - DRY MOUTH [None]
  - DYSPNOEA [None]
  - FATIGUE [None]
  - FEELING ABNORMAL [None]
  - FLATULENCE [None]
  - HALLUCINATION [None]
  - HEADACHE [None]
  - INCREASED APPETITE [None]
  - INFLAMMATORY BOWEL DISEASE [None]
  - INJURY [None]
  - INSOMNIA [None]
  - MALAISE [None]
  - NAUSEA [None]
  - PALPITATIONS [None]
  - PARAESTHESIA [None]
  - RASH [None]
  - SUICIDAL IDEATION [None]
  - TEARFULNESS [None]
  - TREATMENT NONCOMPLIANCE [None]
  - TREMOR [None]
  - WEIGHT INCREASED [None]
  - WITHDRAWAL SYNDROME [None]
